FAERS Safety Report 8853203 (Version 1)
Quarter: 2012Q4

REPORT INFORMATION
  Report Type: 
  Country: FR (occurrence: FR)
  Receive Date: 20121022
  Receipt Date: 20121022
  Transmission Date: 20130627
  Serious: Yes (Hospitalization, Other)
  Sender: FDA-Public Use
  Company Number: FR-PFIZER INC-2012258430

PATIENT
  Age: 78 Year
  Sex: Male

DRUGS (12)
  1. LYRICA [Suspect]
     Indication: PAIN
     Dosage: 25 mg, 1x/day
     Route: 048
     Dates: start: 20120918, end: 20120923
  2. CONTRAMAL [Suspect]
     Indication: PAIN
     Dosage: 100 mg, 3x/day
     Dates: start: 20120917, end: 20120922
  3. CYMBALTA [Suspect]
     Indication: PAIN
     Dosage: 30 mg, 1x/day
     Route: 048
     Dates: start: 20120921, end: 20120923
  4. CYNOMEL [Concomitant]
  5. LEVOTHYROX [Concomitant]
  6. AMLOR [Concomitant]
  7. INEXIUM [Concomitant]
  8. XATRAL [Concomitant]
  9. PLAVIX [Concomitant]
  10. SPIRIVA [Concomitant]
  11. SERETIDE [Concomitant]
  12. PARACETAMOL [Concomitant]
     Dosage: UNK
     Dates: start: 20120918

REACTIONS (11)
  - Hypertension [Not Recovered/Not Resolved]
  - Hallucination [Not Recovered/Not Resolved]
  - Somnolence [Not Recovered/Not Resolved]
  - Confusional state [Not Recovered/Not Resolved]
  - Tremor [Not Recovered/Not Resolved]
  - Bronchitis [Not Recovered/Not Resolved]
  - Hyponatraemia [Not Recovered/Not Resolved]
  - Chronic obstructive pulmonary disease [Not Recovered/Not Resolved]
  - Myocardial infarction [Not Recovered/Not Resolved]
  - Headache [Not Recovered/Not Resolved]
  - Agitation [Not Recovered/Not Resolved]
